FAERS Safety Report 6807239-6 (Version None)
Quarter: 2010Q2

REPORT INFORMATION
  Report Type: 
  Country: None (occurrence: None)
  Receive Date: 20100629
  Receipt Date: 20080804
  Transmission Date: 20101027
  Serious: No
  Sender: FDA-Public Use
  Company Number: US-PFIZER INC-2008065634

PATIENT
  Sex: Male

DRUGS (2)
  1. VIAGRA [Suspect]
     Dosage: NIGHTLY
  2. PENTOXIFYLLINE [Suspect]
     Indication: PEYRONIE'S DISEASE
     Route: 048
     Dates: start: 20080401, end: 20080514

REACTIONS (4)
  - CHEST DISCOMFORT [None]
  - HYPOAESTHESIA [None]
  - LOSS OF LIBIDO [None]
  - PALPITATIONS [None]
